FAERS Safety Report 9586944 (Version 2)
Quarter: 2013Q4

REPORT INFORMATION
  Report Type: Spontaneous
  Country: US (occurrence: US)
  Receive Date: 20131003
  Receipt Date: 20131008
  Transmission Date: 20140711
  Serious: Yes (Other)
  Sender: FDA-Public Use
  Company Number: US-PFIZER INC-2013281731

PATIENT
  Age: 60 Year
  Sex: Female
  Weight: 77.11 kg

DRUGS (20)
  1. IBUPROFEN [Suspect]
     Dosage: UNK
     Dates: end: 20130917
  2. XARELTO [Suspect]
     Indication: THROMBOSIS
     Dosage: 20 MG ONCE A DAY
     Route: 048
     Dates: start: 201307, end: 20130917
  3. XARELTO [Suspect]
     Indication: PULMONARY EMBOLISM
  4. VITAMIN D [Concomitant]
     Indication: PRODUCT USED FOR UNKNOWN INDICATION
     Route: 065
     Dates: end: 20130917
  5. WELLBUTRIN [Concomitant]
     Indication: DEPRESSION
     Route: 048
     Dates: start: 2009
  6. SYNTHROID [Concomitant]
     Indication: THYROID DISORDER
     Route: 048
     Dates: start: 1992
  7. BACLOFEN [Concomitant]
     Indication: PROPHYLAXIS
     Route: 048
     Dates: start: 2009
  8. SPIRONOLACTONE [Concomitant]
     Indication: GRAVITATIONAL OEDEMA
     Route: 048
     Dates: start: 2013
  9. BUMEX [Concomitant]
     Indication: POLYURIA
     Route: 048
  10. DALMANE [Concomitant]
     Indication: SLEEP DISORDER
     Route: 048
  11. KLONOPIN [Concomitant]
     Indication: STRESS
     Route: 048
     Dates: start: 2006
  12. KLONOPIN [Concomitant]
     Indication: ANXIETY
  13. KLONOPIN [Concomitant]
     Indication: SLEEP DISORDER
  14. TRAZODONE [Concomitant]
     Indication: SLEEP DISORDER
     Route: 048
     Dates: start: 2006
  15. ZYRTEC [Concomitant]
     Indication: MULTIPLE ALLERGIES
     Route: 048
  16. CENTRUM [Concomitant]
     Indication: STARVATION
     Route: 048
  17. CALCIUM [Concomitant]
     Indication: OSTEOPOROSIS
     Route: 065
     Dates: start: 2001
  18. PEPCID [Concomitant]
     Indication: GASTRIC DISORDER
     Route: 048
     Dates: start: 2001
  19. MAGNESIUM [Concomitant]
     Route: 048
  20. FISH OIL [Concomitant]
     Route: 048

REACTIONS (8)
  - Epistaxis [Unknown]
  - Ulcer [Unknown]
  - Haemoglobin decreased [Unknown]
  - Blood sodium decreased [Unknown]
  - Osteoporosis [Not Recovered/Not Resolved]
  - Visual impairment [Not Recovered/Not Resolved]
  - Limb injury [Not Recovered/Not Resolved]
  - Fall [Not Recovered/Not Resolved]
